FAERS Safety Report 8425933-0 (Version None)
Quarter: 2012Q2

REPORT INFORMATION
  Report Type: 
  Country: None (occurrence: None)
  Receive Date: 20120611
  Receipt Date: 20120604
  Transmission Date: 20120825
  Serious: Yes (Hospitalization)
  Sender: FDA-Public Use
  Company Number: US-BAYER-2011-029522

PATIENT
  Age: 38 Year
  Sex: Female
  Weight: 126.98 kg

DRUGS (10)
  1. BENICAR [Concomitant]
     Dosage: UNK
     Dates: start: 20090101
  2. LEVOXYL [Concomitant]
     Dosage: UNK
     Dates: start: 19980101
  3. NSAIDS [Concomitant]
     Indication: PAIN
     Dosage: UNK UNK, PRN
  4. YASMIN [Suspect]
     Indication: ACNE
     Dosage: UNK
     Dates: start: 20080101, end: 20100101
  5. HYDROCHLOROTHIAZIDE [Concomitant]
     Dosage: UNK
     Dates: start: 20030101, end: 20100101
  6. METFORMIN HCL [Concomitant]
     Dosage: UNK
     Dates: start: 20040101
  7. AMLODIPINE [Concomitant]
     Dosage: UNK
     Dates: start: 20100101
  8. CARVEDILOL [Concomitant]
     Dosage: UNK
     Dates: start: 20090101
  9. DROSPIRENONE AND ETHINYL ESTRADIOL [Suspect]
     Indication: ACNE
     Dosage: UNK
     Dates: start: 20080101, end: 20100101
  10. ANTIBIOTICS [Concomitant]
     Dosage: UNK, PRN

REACTIONS (3)
  - INJURY [None]
  - CHOLECYSTITIS CHRONIC [None]
  - GALLBLADDER DISORDER [None]
